FAERS Safety Report 5786226-3 (Version None)
Quarter: 2008Q2

REPORT INFORMATION
  Report Type: 
  Country: None (occurrence: None)
  Receive Date: 20080624
  Receipt Date: 20080616
  Transmission Date: 20081010
  Serious: Yes (Death)
  Sender: FDA-Public Use
  Company Number: JP-ABBOTT-08P-087-0458916-00

PATIENT
  Age: 78 Year
  Sex: Male

DRUGS (3)
  1. LEUPLIN SR FOR INJECTION KIT [Suspect]
     Indication: PROSTATE CANCER
     Route: 058
     Dates: start: 20060607, end: 20061122
  2. BICALUTAMIDE [Concomitant]
     Indication: PROSTATE CANCER
     Route: 048
     Dates: end: 20061227
  3. GLIBENCLAMIDE [Concomitant]
     Indication: DIABETES MELLITUS
     Route: 048
     Dates: end: 20061227

REACTIONS (1)
  - PNEUMONIA [None]
